FAERS Safety Report 18246390 (Version 3)
Quarter: 2020Q3

REPORT INFORMATION
  Report Type: Spontaneous
  Country: US (occurrence: US)
  Receive Date: 20200909
  Receipt Date: 20200917
  Transmission Date: 20201103
  Serious: Yes (Hospitalization, Other)
  Sender: FDA-Public Use
  Company Number: US-PFIZER INC-2020344063

PATIENT
  Age: 37 Year
  Sex: Male

DRUGS (4)
  1. BEVACIZUMAB. [Suspect]
     Active Substance: BEVACIZUMAB
     Indication: RETINAL EXUDATES
     Dosage: 2 DF, SINGLE (TOTAL)
     Route: 047
  2. MYCOPHENOLATE MOFETIL. [Concomitant]
     Active Substance: MYCOPHENOLATE MOFETIL
     Indication: SYSTEMIC SCLERODERMA
     Dosage: UNK
  3. BEVACIZUMAB. [Suspect]
     Active Substance: BEVACIZUMAB
     Dosage: 1.25 MG (ON TWO OCCASIONS)
     Route: 047
  4. PREDNISONE. [Suspect]
     Active Substance: PREDNISONE
     Dosage: 60 MG (HIGH?DOSE)
     Route: 048

REACTIONS (7)
  - Scleroderma renal crisis [Unknown]
  - Incorrect route of product administration [Unknown]
  - Condition aggravated [Unknown]
  - Malignant hypertension [Unknown]
  - Off label use [Unknown]
  - Systemic scleroderma [Unknown]
  - Thrombotic microangiopathy [Unknown]
